FAERS Safety Report 5030105-6 (Version None)
Quarter: 2006Q2

REPORT INFORMATION
  Report Type: 
  Country: None (occurrence: None)
  Receive Date: 20060614
  Receipt Date: 20060602
  Transmission Date: 20061013
  Serious: Yes (Hospitalization)
  Sender: FDA-Public Use
  Company Number: 2006-06-0103

PATIENT
  Age: 56 Year
  Sex: Female
  Weight: 61 kg

DRUGS (1)
  1. PEG-INTRON [Suspect]
     Indication: HEPATITIS C
     Dosage: 50 MCG SUBCUTANEOUS
     Dates: start: 20050816

REACTIONS (16)
  - ABDOMINAL PAIN [None]
  - ASCITES [None]
  - CHRONIC SINUSITIS [None]
  - CONSTIPATION [None]
  - EPISTAXIS [None]
  - GINGIVAL BLEEDING [None]
  - GRANULOMATOUS LIVER DISEASE [None]
  - INFECTION PARASITIC [None]
  - INTERNATIONAL NORMALISED RATIO INCREASED [None]
  - LYMPHADENOPATHY [None]
  - PERITONEAL EFFUSION [None]
  - PLATELET COUNT DECREASED [None]
  - PLEURAL EFFUSION [None]
  - PROTHROMBIN TIME PROLONGED [None]
  - SPLENOMEGALY [None]
  - VARICES OESOPHAGEAL [None]
